FAERS Safety Report 11883224 (Version 1)
Quarter: 2015Q4

REPORT INFORMATION
  Report Type: Spontaneous
  Country: US (occurrence: US)
  Receive Date: 20151231
  Receipt Date: 20151231
  Transmission Date: 20160305
  Serious: Yes (Hospitalization)
  Sender: FDA-Public Use
  Company Number: US-SMITH AND NEPHEW, INC-2015SMT00679

PATIENT
  Sex: Male
  Weight: 138.78 kg

DRUGS (16)
  1. METOPROLOL [Concomitant]
     Active Substance: METOPROLOL
     Dosage: UNK, 1X/DAY
  2. LIPITOR [Concomitant]
     Active Substance: ATORVASTATIN CALCIUM
     Dosage: UNK, 1X/DAY
  3. GEMFIBROZIL. [Concomitant]
     Active Substance: GEMFIBROZIL
     Dosage: UNK, 2X/DAY
  4. PREVACID [Concomitant]
     Active Substance: LANSOPRAZOLE
     Dosage: UNK, 1X/DAY
  5. DIGOXIN. [Concomitant]
     Active Substance: DIGOXIN
     Dosage: UNK, 1X/DAY
  6. CARDIZEM [Concomitant]
     Active Substance: DILTIAZEM HYDROCHLORIDE
     Dosage: UNK, 1X/DAY
  7. METANX [Concomitant]
     Active Substance: LEVOMEFOLATE CALCIUM\METHYLCOBALAMIN\PYRIDOXAL PHOSPHATE ANHYDROUS
     Dosage: UNK, 2X/DAY
  8. REGRANEX [Suspect]
     Active Substance: BECAPLERMIN
     Indication: WOUND
     Dosage: UNK UNK, 1X/DAY
     Route: 061
     Dates: start: 20151015, end: 20151213
  9. METFORMIN HYDROCHLORIDE. [Concomitant]
     Active Substance: METFORMIN HYDROCHLORIDE
     Dosage: UNK, 2X/DAY
  10. COUMADIN [Concomitant]
     Active Substance: WARFARIN SODIUM
     Dosage: 7.5 MG, 1X/DAY
  11. JANUVIA [Concomitant]
     Active Substance: SITAGLIPTIN PHOSPHATE
     Dosage: UNK, 1X/DAY
  12. GLIPIZIDE. [Concomitant]
     Active Substance: GLIPIZIDE
     Dosage: UNK, 2X/DAY
  13. NEURONTIN [Concomitant]
     Active Substance: GABAPENTIN
     Dosage: UNK, 3X/DAY
  14. ALTACE [Concomitant]
     Active Substance: RAMIPRIL
     Dosage: UNK, 1X/DAY
  15. LOVAZA [Concomitant]
     Active Substance: OMEGA-3-ACID ETHYL ESTERS
     Dosage: 2 CAPSULES, 2X/DAY
  16. BABY ASPIRIN [Concomitant]
     Active Substance: ASPIRIN
     Dosage: 2 TABLETS, 1X/DAY

REACTIONS (2)
  - Localised infection [Unknown]
  - Application site discharge [Recovering/Resolving]

NARRATIVE: CASE EVENT DATE: 2015
